FAERS Safety Report 9992721 (Version 3)
Quarter: 2014Q2

REPORT INFORMATION
  Report Type: Spontaneous
  Country: US (occurrence: US)
  Receive Date: 20140310
  Receipt Date: 20140527
  Transmission Date: 20141212
  Serious: No
  Sender: FDA-Public Use
  Company Number: US-PFIZER INC-2014067984

PATIENT
  Sex: Female

DRUGS (2)
  1. PREMARIN [Suspect]
     Dosage: UNK
     Route: 067
  2. LYRICA [Concomitant]
     Dosage: UNK

REACTIONS (3)
  - Bone loss [Unknown]
  - Tooth loss [Unknown]
  - Hormone level abnormal [Unknown]
